FAERS Safety Report 13125675 (Version 1)
Quarter: 2017Q1

REPORT INFORMATION
  Report Type: Spontaneous
  Country: US (occurrence: US)
  Receive Date: 20170118
  Receipt Date: 20170118
  Transmission Date: 20170428
  Serious: No
  Sender: FDA-Public Use
  Company Number: US-DEPOMED, INC.-US-2016DEP011911

PATIENT

DRUGS (5)
  1. NUCYNTA [Suspect]
     Active Substance: TAPENTADOL HYDROCHLORIDE
     Dosage: 50 MG, QID
     Route: 048
     Dates: start: 2015, end: 201608
  2. NUCYNTA [Suspect]
     Active Substance: TAPENTADOL HYDROCHLORIDE
     Indication: PAIN
     Dosage: 75 MG, QID
     Route: 048
     Dates: start: 2012, end: 2015
  3. ATENOLOL. [Concomitant]
     Active Substance: ATENOLOL
     Indication: PANIC ATTACK
     Dosage: 25 MG, BID
     Route: 048
  4. ALPRAZOLAM. [Concomitant]
     Active Substance: ALPRAZOLAM
     Indication: PANIC ATTACK
     Dosage: 1 MG, PRN
     Route: 048
     Dates: start: 1998
  5. NUCYNTA [Suspect]
     Active Substance: TAPENTADOL HYDROCHLORIDE
     Dosage: 50 MG NUCYNTA TABLETS TOOK 1.5 TABLETS, 4 TIMES A DAY
     Route: 048
     Dates: start: 201608

REACTIONS (4)
  - Drug effect decreased [Not Recovered/Not Resolved]
  - Wrong technique in product usage process [Not Recovered/Not Resolved]
  - Body height decreased [Unknown]
  - Drug ineffective [Unknown]

NARRATIVE: CASE EVENT DATE: 201608
